FAERS Safety Report 14574457 (Version 1)
Quarter: 2018Q1

REPORT INFORMATION
  Report Type: Spontaneous
  Country: US (occurrence: US)
  Receive Date: 20180226
  Receipt Date: 20180226
  Transmission Date: 20180509
  Serious: No
  Sender: FDA-Public Use
  Company Number: US-009507513-1802USA012893

PATIENT
  Age: 45 Year

DRUGS (1)
  1. NASONEX [Suspect]
     Active Substance: MOMETASONE FUROATE
     Indication: HYPERSENSITIVITY
     Dosage: UNK, NASAL SPRAY (AEROSOL)
     Route: 055

REACTIONS (2)
  - Sinusitis [Not Recovered/Not Resolved]
  - Product quality issue [Unknown]

NARRATIVE: CASE EVENT DATE: 20180217
